FAERS Safety Report 9228403 (Version 2)
Quarter: 2013Q2

REPORT INFORMATION
  Report Type: Report from Study
  Country: US (occurrence: US)
  Receive Date: 20130412
  Receipt Date: 20130520
  Transmission Date: 20140414
  Serious: Yes (Death, Other)
  Sender: FDA-Public Use
  Company Number: US-ROCHE-1212554

PATIENT
  Sex: 0

DRUGS (6)
  1. ALTEPLASE [Suspect]
     Indication: ACUTE MYOCARDIAL INFARCTION
     Route: 065
  2. TENECTEPLASE [Suspect]
     Indication: ACUTE MYOCARDIAL INFARCTION
     Route: 065
  3. UNFRACTIONATED HEPARIN [Suspect]
     Indication: ACUTE MYOCARDIAL INFARCTION
     Dosage: BOLUS OF 60 U/KG FOLLOWED BY CONTINUOUS INFUSION AT 12 U/KG/HOUR INITIATED WITHIN 15 MINS OF THE BO+
     Route: 042
  4. ENOXAPARIN [Suspect]
     Indication: ACUTE MYOCARDIAL INFARCTION
     Route: 065
  5. ASPIRIN [Concomitant]
     Indication: ACUTE MYOCARDIAL INFARCTION
     Dosage: 150 MG - 325 MG OR 500 IV ON FIRST DAY
     Route: 065
  6. ASPIRIN [Concomitant]
     Dosage: 75MG -325 MG DAILY
     Route: 065

REACTIONS (6)
  - Death [Fatal]
  - Haemorrhage intracranial [Unknown]
  - Haemorrhage [Unknown]
  - Myocardial infarction [Unknown]
  - Myocardial infarction [Unknown]
  - Myocardial ischaemia [Unknown]
